FAERS Safety Report 8974733 (Version 1)
Quarter: 2012Q4

REPORT INFORMATION
  Report Type: 
  Country: IT (occurrence: IT)
  Receive Date: 20121219
  Receipt Date: 20121219
  Transmission Date: 20130627
  Serious: Yes (Other)
  Sender: FDA-Public Use
  Company Number: IT-MYLANLABS-2012S1025487

PATIENT
  Age: 71 Year
  Sex: Male

DRUGS (1)
  1. RAMIPRIL [Suspect]
     Indication: ESSENTIAL HYPERTENSION
     Dates: start: 20121030

REACTIONS (2)
  - Epistaxis [Recovered/Resolved]
  - Hypertensive crisis [Recovered/Resolved]
